FAERS Safety Report 6377460-2 (Version None)
Quarter: 2009Q3

REPORT INFORMATION
  Report Type: 
  Country: None (occurrence: None)
  Receive Date: 20090923
  Receipt Date: 20090923
  Transmission Date: 20100115
  Serious: Yes (Life-Threatening, Hospitalization)
  Sender: FDA-Public Use
  Company Number: None

PATIENT
  Age: 65 Year
  Sex: Male

DRUGS (24)
  1. HYDROMORPHONE PCA (0.4/0.4/10) [Suspect]
     Indication: PAIN
     Dosage: (0.4/0.4/10)
     Dates: start: 20090825, end: 20090826
  2. HEPARIN [Concomitant]
  3. APAP TAB [Concomitant]
  4. AL HYDROXIDE [Concomitant]
  5. MG HYDROXIDE [Concomitant]
  6. SIMETHICONE [Concomitant]
  7. AMIODARONE HCL [Concomitant]
  8. ATORVASTATIN [Concomitant]
  9. CEFAZOLIN [Concomitant]
  10. AMRIX [Concomitant]
  11. DIAZEPAM [Concomitant]
  12. DIPHENHYDRAMINE HCL [Concomitant]
  13. DOCUSATE [Concomitant]
  14. INSULIN ASPART [Concomitant]
  15. LANSOPRAZOLE [Concomitant]
  16. LOSARTAN [Concomitant]
  17. METOPROLOL SUCCINATE [Concomitant]
  18. PREDNISONE TAB [Concomitant]
  19. MYCOPHEN ACID [Concomitant]
  20. RANITIDINE [Concomitant]
  21. ROPINIROLE [Concomitant]
  22. SENNA [Concomitant]
  23. TACROLIMUS [Concomitant]
  24. SODIUM POLYSTYRENE [Concomitant]

REACTIONS (7)
  - APNOEA [None]
  - BACK PAIN [None]
  - DYSPNOEA [None]
  - LETHARGY [None]
  - MENTAL STATUS CHANGES [None]
  - PROCEDURAL PAIN [None]
  - SOMNOLENCE [None]
